FAERS Safety Report 7992676-7 (Version None)
Quarter: 2011Q4

REPORT INFORMATION
  Report Type: 
  Country: None (occurrence: None)
  Receive Date: 20111219
  Receipt Date: 20110222
  Transmission Date: 20120403
  Serious: No
  Sender: FDA-Public Use
  Company Number: US-ASTRAZENECA-2011SE09934

PATIENT
  Age: 77 Year
  Sex: Male
  Weight: 77.1 kg

DRUGS (3)
  1. LEVOTHYROIXINE [Concomitant]
     Indication: HYPOTHYROIDISM
  2. CRESTOR [Suspect]
     Indication: HYPERCHOLESTEROLAEMIA
     Route: 048
     Dates: start: 20110201
  3. HTN MEDICATION [Concomitant]
     Indication: HYPERTENSION

REACTIONS (2)
  - ASTHENIA [None]
  - FEELING ABNORMAL [None]
